FAERS Safety Report 7068688-7 (Version None)
Quarter: 2010Q4

REPORT INFORMATION
  Report Type: 
  Country: None (occurrence: None)
  Receive Date: 20101028
  Receipt Date: 20101020
  Transmission Date: 20110411
  Serious: Yes (Hospitalization)
  Sender: FDA-Public Use
  Company Number: JP-PFIZER INC-2010117902

PATIENT
  Age: 90 Year
  Sex: Male

DRUGS (6)
  1. ESTRACYT [Suspect]
     Indication: PROSTATE CANCER
     Dosage: 626.8  MG/DAY
     Route: 048
     Dates: start: 20100525, end: 20100914
  2. CANDESARTAN CILEXETIL [Concomitant]
     Dosage: 4 MG/DAY
     Route: 048
  3. DECADRON [Concomitant]
     Dosage: 0.5 MG/DAY
     Route: 065
  4. TAKEPRON [Concomitant]
     Dosage: 15 MG/DAY
     Route: 065
  5. FUROSEMIDE [Concomitant]
     Dosage: 10 MG/DAY
     Route: 065
  6. MUCOSTA [Concomitant]
     Dosage: 2 DF/DAY
     Route: 048

REACTIONS (1)
  - PHARYNGEAL OEDEMA [None]
